FAERS Safety Report 19241236 (Version 1)
Quarter: 2021Q2

REPORT INFORMATION
  Report Type: Spontaneous
  Country: US (occurrence: US)
  Receive Date: 20210511
  Receipt Date: 20210511
  Transmission Date: 20210717
  Serious: Yes (Hospitalization, Other)
  Sender: FDA-Public Use
  Company Number: US-SA-2021SA156341

PATIENT
  Sex: Male

DRUGS (3)
  1. MORPHIN [MORPHINE SULFATE] [Concomitant]
     Dosage: UNK, Q4H
  2. DUPIXENT [Suspect]
     Active Substance: DUPILUMAB
     Indication: DERMATITIS ATOPIC
     Route: 058
  3. HALDOL [Concomitant]
     Active Substance: HALOPERIDOL
     Dosage: UNK, Q4H

REACTIONS (4)
  - Ulcer [Unknown]
  - Gastrointestinal haemorrhage [Unknown]
  - Pancreatic carcinoma metastatic [Unknown]
  - Oesophagitis [Unknown]
